FAERS Safety Report 13255097 (Version 6)
Quarter: 2017Q3

REPORT INFORMATION
  Report Type: Spontaneous
  Country: IT (occurrence: IT)
  Receive Date: 20170221
  Receipt Date: 20170921
  Transmission Date: 20171127
  Serious: Yes (Hospitalization, Other)
  Sender: FDA-Public Use
  Company Number: IT-TEVA-740090ACC

PATIENT
  Age: 65 Year
  Sex: Female

DRUGS (14)
  1. CICLOFOSFAMIDE [Suspect]
     Active Substance: CYCLOPHOSPHAMIDE
     Indication: SJOGREN^S SYNDROME
     Route: 048
     Dates: start: 2002
  2. MICOFENOLATO MOFETILE [Suspect]
     Active Substance: MYCOPHENOLATE SODIUM
     Indication: CRYOGLOBULINAEMIA
  3. AZATIOPRINA [Suspect]
     Active Substance: AZATHIOPRINE
     Indication: SJOGREN^S SYNDROME
  4. RITUXIMAB. [Suspect]
     Active Substance: RITUXIMAB
     Indication: CRYOGLOBULINAEMIA
  5. AZATIOPRINA [Suspect]
     Active Substance: AZATHIOPRINE
     Indication: CRYOGLOBULINAEMIA
  6. PREDNISONE. [Suspect]
     Active Substance: PREDNISONE
     Indication: SJOGREN^S SYNDROME
     Route: 065
  7. MICOFENOLATO MOFETILE [Suspect]
     Active Substance: MYCOPHENOLATE SODIUM
     Indication: SJOGREN^S SYNDROME
     Dosage: 2 GRAM DAILY;
     Dates: start: 2010
  8. CICLOFOSFAMIDE [Suspect]
     Active Substance: CYCLOPHOSPHAMIDE
     Indication: CRYOGLOBULINAEMIA
  9. PREDNISONE. [Suspect]
     Active Substance: PREDNISONE
     Indication: CRYOGLOBULINAEMIA
  10. PREDNISONE. [Suspect]
     Active Substance: PREDNISONE
     Indication: AUTOIMMUNE HEPATITIS
  11. CICLOSPORINA [Suspect]
     Active Substance: CYCLOSPORINE
     Indication: SJOGREN^S SYNDROME
     Route: 065
  12. RIBAVIRIN. [Suspect]
     Active Substance: RIBAVIRIN
     Indication: HEPATITIS E
     Dosage: 800 MILLIGRAM DAILY;
     Route: 065
  13. CICLOSPORINA [Suspect]
     Active Substance: CYCLOSPORINE
     Indication: CRYOGLOBULINAEMIA
  14. RITUXIMAB. [Suspect]
     Active Substance: RITUXIMAB
     Indication: SJOGREN^S SYNDROME
     Dates: start: 2010

REACTIONS (2)
  - Hepatitis E [Recovered/Resolved]
  - Anaemia macrocytic [Unknown]
